FAERS Safety Report 18105805 (Version 2)
Quarter: 2021Q1

REPORT INFORMATION
  Report Type: Spontaneous
  Country: US (occurrence: US)
  Receive Date: 20200804
  Receipt Date: 20210319
  Transmission Date: 20210419
  Serious: No
  Sender: FDA-Public Use
  Company Number: US-BIOGEN-2020BI00906382

PATIENT
  Age: 50 Year
  Sex: Female

DRUGS (3)
  1. TECFIDERA [Suspect]
     Active Substance: DIMETHYL FUMARATE
     Route: 065
     Dates: start: 20150724
  2. CELEBREX [Concomitant]
     Active Substance: CELECOXIB
     Route: 065
  3. TECFIDERA [Suspect]
     Active Substance: DIMETHYL FUMARATE
     Indication: MULTIPLE SCLEROSIS
     Route: 065

REACTIONS (4)
  - Product dose omission issue [Unknown]
  - Flushing [Recovered/Resolved]
  - Inappropriate schedule of product administration [Unknown]
  - Flatulence [Unknown]

NARRATIVE: CASE EVENT DATE: 20150724
